FAERS Safety Report 10510335 (Version 1)
Quarter: 2014Q4

REPORT INFORMATION
  Report Type: Spontaneous
  Country: US (occurrence: None)
  Receive Date: 20141009
  Receipt Date: 20141009
  Transmission Date: 20150528
  Serious: Yes (Disabling)
  Sender: FDA-Public Use
  Company Number: None

PATIENT
  Age: 7 Month
  Sex: Male
  Weight: 29.48 kg

DRUGS (2)
  1. BETAMETHASONE DIPROPIONATE. [Suspect]
     Active Substance: BETAMETHASONE DIPROPIONATE
     Indication: ECZEMA
     Dosage: AFFECTED AREA OF SKIN TWICE DAILY APPLIED TO A SURFACE, USUALLY THE SKIN
     Route: 061
     Dates: start: 20140220, end: 20140911
  2. DESONIDE. [Suspect]
     Active Substance: DESONIDE
     Indication: ECZEMA
     Dosage: APPLY TO NECK, FACE UNTIL CLEA  TWICE DAILY  APPLIED TO A SURFACE, USUALLY THE SKIN
     Route: 061

REACTIONS (6)
  - Withdrawal syndrome [None]
  - Pruritus [None]
  - Incorrect drug administration duration [None]
  - Overdose [None]
  - Drug dependence [None]
  - Pain [None]

NARRATIVE: CASE EVENT DATE: 20141007
